FAERS Safety Report 5530862-6 (Version None)
Quarter: 2007Q4

REPORT INFORMATION
  Report Type: 
  Country: None (occurrence: None)
  Receive Date: 20071130
  Receipt Date: 20071120
  Transmission Date: 20080405
  Serious: Yes (Death)
  Sender: FDA-Public Use
  Company Number: JP-SANOFI-SYNTHELABO-A01200713398

PATIENT
  Age: 78 Year
  Sex: Male

DRUGS (3)
  1. FLUOROURACIL [Concomitant]
     Route: 042
     Dates: start: 20070927, end: 20070928
  2. LEUCOVORIN CALCIUM [Concomitant]
     Route: 042
     Dates: start: 20070927, end: 20070928
  3. OXALIPLATIN [Suspect]
     Dosage: 85 MG/M2
     Route: 042
     Dates: start: 20070927, end: 20070927

REACTIONS (1)
  - INTERSTITIAL LUNG DISEASE [None]
